FAERS Safety Report 10527005 (Version 1)
Quarter: 2014Q4

REPORT INFORMATION
  Report Type: Spontaneous
  Country: US (occurrence: None)
  Receive Date: 20141015
  Receipt Date: 20141015
  Transmission Date: 20150528
  Serious: Yes (Disabling)
  Sender: FDA-Public Use
  Company Number: None

PATIENT
  Age: 51 Year
  Sex: Male
  Weight: 117.94 kg

DRUGS (1)
  1. CYMBALTA [Suspect]
     Active Substance: DULOXETINE HYDROCHLORIDE
     Indication: GENERALISED ANXIETY DISORDER
     Route: 048
     Dates: start: 20081031, end: 20141013

REACTIONS (9)
  - Product substitution issue [None]
  - Orthostatic hypotension [None]
  - Migraine [None]
  - Dizziness [None]
  - Muscular weakness [None]
  - Walking aid user [None]
  - Thinking abnormal [None]
  - Tinnitus [None]
  - Drug effect variable [None]

NARRATIVE: CASE EVENT DATE: 20141013
